FAERS Safety Report 7589819-6 (Version None)
Quarter: 2011Q3

REPORT INFORMATION
  Report Type: 
  Country: None (occurrence: None)
  Receive Date: 20110705
  Receipt Date: 20110620
  Transmission Date: 20111222
  Serious: No
  Sender: FDA-Public Use
  Company Number: US-ROXANE LABORATORIES, INC.-2011-RO-00892RO

PATIENT
  Sex: Female

DRUGS (1)
  1. ANASTROZOLE [Suspect]

REACTIONS (3)
  - PARAESTHESIA [None]
  - JOINT STIFFNESS [None]
  - MUSCULAR WEAKNESS [None]
